FAERS Safety Report 5489759-2 (Version None)
Quarter: 2007Q4

REPORT INFORMATION
  Report Type: 
  Country: None (occurrence: None)
  Receive Date: 20071018
  Receipt Date: 20061110
  Transmission Date: 20080405
  Serious: No
  Sender: FDA-Public Use
  Company Number: US-ASTRAZENECA-2006UW23458

PATIENT

DRUGS (1)
  1. MERREM [Suspect]
     Indication: PSEUDOMONAS INFECTION
     Route: 042

REACTIONS (1)
  - PATHOGEN RESISTANCE [None]
